FAERS Safety Report 9381898 (Version 1)
Quarter: 2013Q3

REPORT INFORMATION
  Report Type: Spontaneous
  Country: US (occurrence: US)
  Receive Date: 20130703
  Receipt Date: 20130703
  Transmission Date: 20140515
  Serious: No
  Sender: FDA-Public Use
  Company Number: US-PFIZER INC-2013194575

PATIENT
  Sex: Male

DRUGS (4)
  1. GLUCOTROL [Suspect]
     Dosage: UNK
  2. GLUCOPHAGE [Suspect]
     Dosage: UNK
  3. NOVOLIN N [Suspect]
     Dosage: UNK
  4. NOVOLIN RELI ON [Suspect]
     Dosage: UNK

REACTIONS (2)
  - Blood glucose decreased [Unknown]
  - Blood glucose increased [Unknown]
